FAERS Safety Report 14314198 (Version 2)
Quarter: 2017Q4

REPORT INFORMATION
  Report Type: Report from Study
  Country: BR (occurrence: BR)
  Receive Date: 20171221
  Receipt Date: 20171230
  Transmission Date: 20180321
  Serious: Yes (Death, Other)
  Sender: FDA-Public Use
  Company Number: BR-AMGEN-BRASP2017188569

PATIENT
  Sex: Female

DRUGS (2)
  1. BLINATUMOMAB [Suspect]
     Active Substance: BLINATUMOMAB
     Indication: PRODUCT USED FOR UNKNOWN INDICATION
     Dosage: UNK
     Route: 065
     Dates: end: 20171130
  2. POLYMYXIN [Suspect]
     Active Substance: POLYMYXIN
     Indication: PRODUCT USED FOR UNKNOWN INDICATION
     Route: 065

REACTIONS (4)
  - Haemorrhage intracranial [Fatal]
  - Toxic epidermal necrolysis [Unknown]
  - Septic shock [Unknown]
  - Dialysis [Unknown]

NARRATIVE: CASE EVENT DATE: 201712
